FAERS Safety Report 8902580 (Version 1)
Quarter: 2012Q4

REPORT INFORMATION
  Report Type: 
  Country: US (occurrence: US)
  Receive Date: 20121112
  Receipt Date: 20121112
  Transmission Date: 20130627
  Serious: No
  Sender: FDA-Public Use
  Company Number: US-MYLANLABS-2011S1022146

PATIENT
  Age: 58 Year
  Sex: Female
  Weight: 114.31 kg

DRUGS (22)
  1. FUROSEMIDE TABLETS, USP [Suspect]
     Indication: OEDEMA PERIPHERAL
     Route: 048
     Dates: start: 20110624, end: 20110827
  2. TEGRETOL [Suspect]
     Route: 048
     Dates: start: 20110624, end: 20110827
  3. WARFARIN [Concomitant]
     Route: 048
  4. LEXAPRO [Concomitant]
     Indication: FIBROMYALGIA
     Route: 048
  5. BUPROPION [Concomitant]
     Indication: DEPRESSION
     Route: 048
  6. SYNTHROID [Concomitant]
     Indication: BASEDOW^S DISEASE
     Route: 048
  7. CELEBREX [Concomitant]
     Indication: ARTHRITIS
     Route: 048
  8. TRAZODONE [Concomitant]
     Indication: FIBROMYALGIA
     Route: 048
  9. TOVIAZ [Concomitant]
     Indication: STRESS URINARY INCONTINENCE
     Route: 048
  10. PRILOSEC [Concomitant]
     Route: 048
  11. POTASSIUM CHLORIDE [Concomitant]
     Indication: ELECTROLYTE SUBSTITUTION THERAPY
     Route: 048
  12. HYDROCODONE W/ACETAMINOPHEN [Concomitant]
     Indication: BACK PAIN
     Dosage: 10/325MG -6 TO 8 TIMES PER DAY
     Route: 048
  13. STOOL SOFTENER [Concomitant]
  14. VITAMIN C [Concomitant]
  15. CALCIUM MAGNESIUM CITRATE [Concomitant]
  16. GARLIC [Concomitant]
  17. VITAMIN B12 [Concomitant]
  18. OMEGA 3 /00931501/ [Concomitant]
  19. VITAMIN E [Concomitant]
  20. VITAMIN D [Concomitant]
  21. GLUCOSAMINE + CHONDROITIN WITH MSM /05199601/ [Concomitant]
     Dosage: 600/560mg
     Route: 048
  22. CYMBALTA [Concomitant]
     Route: 048

REACTIONS (8)
  - Drug dispensing error [Recovered/Resolved]
  - Drug administration error [Recovered/Resolved]
  - Confusional state [Recovered/Resolved]
  - Somnolence [Recovered/Resolved]
  - Oedema peripheral [Recovered/Resolved]
  - Flat affect [Recovered/Resolved]
  - Dizziness [Recovered/Resolved]
  - Fatigue [Recovered/Resolved]
